FAERS Safety Report 17240689 (Version 1)
Quarter: 2020Q1

REPORT INFORMATION
  Report Type: Spontaneous
  Country: DE (occurrence: DE)
  Receive Date: 20200107
  Receipt Date: 20200107
  Transmission Date: 20200409
  Serious: Yes (Hospitalization)
  Sender: FDA-Public Use
  Company Number: DE-TEVA-2019-DE-1162155

PATIENT
  Age: 67 Year
  Sex: Female

DRUGS (4)
  1. BISOPROLOL [Suspect]
     Active Substance: BISOPROLOL
     Dosage: 2.5 MG, 0.5-0-0-0
  2. LISINOPRIL 10 [Suspect]
     Active Substance: LISINOPRIL
     Dosage: 10 MG, 0.5-0-0.5-0
     Route: 065
  3. AMITRIPTYLIN-CT 25MG [Suspect]
     Active Substance: AMITRIPTYLINE HYDROCHLORIDE
     Dosage: 25 MG, BEI BEDARF
     Route: 065
  4. L-THYROXIN 100-1A PHARMA [Concomitant]
     Dosage: 100 ?G, 1-0-0-0

REACTIONS (5)
  - Cold sweat [Recovered/Resolved]
  - Fall [Recovered/Resolved]
  - Syncope [Recovered/Resolved]
  - Nausea [Recovered/Resolved]
  - Hyperhidrosis [Recovered/Resolved]
